FAERS Safety Report 17851581 (Version 1)
Quarter: 2020Q2

REPORT INFORMATION
  Report Type: Spontaneous
  Country: AU (occurrence: AU)
  Receive Date: 20200602
  Receipt Date: 20200602
  Transmission Date: 20200714
  Serious: Yes (Hospitalization, Other)
  Sender: FDA-Public Use
  Company Number: AU-AMGEN-AUSSP2020085301

PATIENT
  Age: 78 Year
  Sex: Male

DRUGS (3)
  1. ARANESP [Suspect]
     Active Substance: DARBEPOETIN ALFA
     Dosage: 80 MICROGRAM
     Route: 058
  2. ARANESP [Suspect]
     Active Substance: DARBEPOETIN ALFA
     Dosage: 150 MICROGRAM/0.3ML
     Route: 058
  3. ARANESP [Suspect]
     Active Substance: DARBEPOETIN ALFA
     Indication: PRODUCT USED FOR UNKNOWN INDICATION
     Dosage: 40 MICROGRAM
     Route: 058

REACTIONS (3)
  - Unevaluable event [Unknown]
  - Device difficult to use [Unknown]
  - Malaise [Unknown]

NARRATIVE: CASE EVENT DATE: 20200526
